FAERS Safety Report 4393045-1 (Version None)
Quarter: 2004Q3

REPORT INFORMATION
  Report Type: 
  Country: None (occurrence: None)
  Receive Date: 20040708
  Receipt Date: 20040401
  Transmission Date: 20050211
  Serious: Yes (Other)
  Sender: FDA-Public Use
  Company Number: US-ROCHE-363720

PATIENT
  Age: 75 Year
  Sex: Female
  Weight: 95.3 kg

DRUGS (4)
  1. XENICAL [Suspect]
     Indication: OBESITY
     Route: 048
     Dates: start: 20030515
  2. LIPITOR [Concomitant]
     Route: 048
  3. AMARYL [Concomitant]
     Route: 048
  4. MAXZIDE [Concomitant]
     Route: 048

REACTIONS (4)
  - ASTHENIA [None]
  - DIABETES MELLITUS [None]
  - FATIGUE [None]
  - SPINAL COLUMN STENOSIS [None]
